FAERS Safety Report 5747285-7 (Version None)
Quarter: 2008Q2

REPORT INFORMATION
  Report Type: 
  Country: None (occurrence: None)
  Receive Date: 20080523
  Receipt Date: 20080513
  Transmission Date: 20081010
  Serious: Yes (Hospitalization)
  Sender: FDA-Public Use
  Company Number: SE-JNJFOC-20080502690

PATIENT
  Age: 64 Year
  Sex: Female

DRUGS (10)
  1. REMICADE [Suspect]
     Route: 042
  2. REMICADE [Suspect]
     Indication: RHEUMATOID ARTHRITIS
     Route: 042
  3. METHOTREXATE [Suspect]
     Indication: RHEUMATOID ARTHRITIS
     Route: 048
  4. TENOXICAM [Concomitant]
  5. FOSAMAX [Concomitant]
  6. XALATAN [Concomitant]
  7. ZOPIKLON [Concomitant]
  8. BLOCADREN [Concomitant]
  9. PLENDIL [Concomitant]
  10. IDEOS [Concomitant]

REACTIONS (2)
  - ACUTE MYELOID LEUKAEMIA [None]
  - DEVICE RELATED INFECTION [None]
